FAERS Safety Report 19270662 (Version 1)
Quarter: 2021Q2

REPORT INFORMATION
  Report Type: Report from Study
  Country: US (occurrence: US)
  Receive Date: 20210518
  Receipt Date: 20210518
  Transmission Date: 20210717
  Serious: Yes (Hospitalization)
  Sender: FDA-Public Use
  Company Number: US-EXELIXIS-CABO-21037944

PATIENT
  Age: 64 Year
  Sex: Male

DRUGS (2)
  1. CABOMETYX [Suspect]
     Active Substance: CABOZANTINIB S-MALATE
     Dosage: 60 MG, QD
     Route: 048
     Dates: start: 202102
  2. CABOMETYX [Suspect]
     Active Substance: CABOZANTINIB S-MALATE
     Indication: PRODUCT USED FOR UNKNOWN INDICATION
     Dosage: 60 MG, QD
     Route: 048
     Dates: start: 202012

REACTIONS (10)
  - Diaphragmatic paralysis [Unknown]
  - Dyspnoea [Unknown]
  - Taste disorder [Recovering/Resolving]
  - Product dose omission issue [Unknown]
  - Abdominal distension [Unknown]
  - Blood pressure increased [Recovering/Resolving]
  - Abdominal discomfort [Recovering/Resolving]
  - Alopecia [Unknown]
  - Chest pain [Unknown]
  - Anal pruritus [Unknown]

NARRATIVE: CASE EVENT DATE: 20210119
